FAERS Safety Report 12621259 (Version 1)
Quarter: 2016Q3

REPORT INFORMATION
  Report Type: Spontaneous
  Country: US (occurrence: US)
  Receive Date: 20160804
  Receipt Date: 20160804
  Transmission Date: 20161109
  Serious: No
  Sender: FDA-Public Use
  Company Number: US-PFIZER INC-2016367553

PATIENT
  Sex: Female

DRUGS (1)
  1. XANAX [Suspect]
     Active Substance: ALPRAZOLAM
     Dosage: 12 MG, 1X/DAY (0.5 MG TOTAL DAILY DOSAGE UP TO 12 MG A DAY)

REACTIONS (5)
  - Hyperaesthesia [Unknown]
  - Hyperhidrosis [Unknown]
  - Overdose [Unknown]
  - Skin irritation [Unknown]
  - Skin odour abnormal [Unknown]
